FAERS Safety Report 18551230 (Version 1)
Quarter: 2020Q4

REPORT INFORMATION
  Report Type: Spontaneous
  Country: US (occurrence: US)
  Receive Date: 20201126
  Receipt Date: 20201126
  Transmission Date: 20210114
  Serious: Yes (Hospitalization)
  Sender: FDA-Public Use
  Company Number: US-TAKEDA-2020TUS052391

PATIENT
  Age: 34 Year
  Sex: Female
  Weight: 83.9 kg

DRUGS (11)
  1. DIPHENHYDRAMINE. [Concomitant]
     Active Substance: DIPHENHYDRAMINE
  2. SODIUM CHLORIDE. [Concomitant]
     Active Substance: SODIUM CHLORIDE
  3. HEPARIN [Concomitant]
     Active Substance: HEPARIN SODIUM
  4. PYRIDOSTIGMINE [Concomitant]
     Active Substance: PYRIDOSTIGMINE
  5. LIDOCAINE. [Concomitant]
     Active Substance: LIDOCAINE
  6. EPINEPHRINE. [Concomitant]
     Active Substance: EPINEPHRINE
  7. LMX4 [Concomitant]
     Active Substance: LIDOCAINE
  8. PREDNISONE. [Concomitant]
     Active Substance: PREDNISONE
  9. GAMMAGARD LIQUID [Suspect]
     Active Substance: HUMAN IMMUNOGLOBULIN G
     Indication: MYASTHENIA GRAVIS
     Dosage: 45 GRAM, Q4WEEKS
     Route: 042
     Dates: start: 20190218
  10. ACETAMINOPHEN. [Concomitant]
     Active Substance: ACETAMINOPHEN
  11. ASPIRIN (E.C.) [Concomitant]
     Active Substance: ASPIRIN

REACTIONS (1)
  - Road traffic accident [Unknown]

NARRATIVE: CASE EVENT DATE: 20201031
